FAERS Safety Report 8447987-8 (Version None)
Quarter: 2012Q2

REPORT INFORMATION
  Report Type: 
  Country: None (occurrence: None)
  Receive Date: 20120612
  Receipt Date: 20120530
  Transmission Date: 20120825
  Serious: Yes (Disabling, Other)
  Sender: FDA-Public Use
  Company Number: 2012SP023480

PATIENT
  Sex: Male

DRUGS (2)
  1. RIBAVIRIN [Suspect]
     Indication: HEPATITIS C
     Dates: start: 20120406
  2. PEG-INTRON [Suspect]
     Indication: HEPATITIS C
     Dates: start: 20120406

REACTIONS (34)
  - INJECTION SITE DISCOLOURATION [None]
  - SUBSTANCE USE [None]
  - APPLICATION SITE RASH [None]
  - MUSCULOSKELETAL CHEST PAIN [None]
  - PAIN IN EXTREMITY [None]
  - POLYDIPSIA [None]
  - MYALGIA [None]
  - ABNORMAL DREAMS [None]
  - ASTHENIA [None]
  - PRURITUS [None]
  - BURNING SENSATION [None]
  - FEELING ABNORMAL [None]
  - VOMITING [None]
  - HUNGER [None]
  - INSOMNIA [None]
  - INFLUENZA [None]
  - PAIN [None]
  - BACK PAIN [None]
  - DYSGEUSIA [None]
  - CHILLS [None]
  - EYE INFLAMMATION [None]
  - PANCREATITIS [None]
  - NAUSEA [None]
  - RASH ERYTHEMATOUS [None]
  - LIVER FUNCTION TEST ABNORMAL [None]
  - FOREIGN BODY SENSATION IN EYES [None]
  - POLLAKIURIA [None]
  - DECREASED APPETITE [None]
  - FATIGUE [None]
  - WEIGHT DECREASED [None]
  - APPLICATION SITE PAIN [None]
  - ANGER [None]
  - POOR QUALITY SLEEP [None]
  - BLOOD GLUCOSE INCREASED [None]
